FAERS Safety Report 4747572-5 (Version None)
Quarter: 2005Q3

REPORT INFORMATION
  Report Type: 
  Country: None (occurrence: None)
  Receive Date: 20050818
  Receipt Date: 20040913
  Transmission Date: 20060218
  Serious: Yes (Life-Threatening)
  Sender: FDA-Public Use
  Company Number: US-BRISTOL-MYERS SQUIBB COMPANY-12704425

PATIENT
  Age: 72 Year
  Sex: Female

DRUGS (16)
  1. TEQUIN [Suspect]
     Indication: PNEUMONIA
     Dosage: INITIATED ON 400 MG DAILY, DECREASED TO 200 MG ON 06-SEP-2004.
     Route: 042
     Dates: start: 20040101, end: 20040910
  2. ALBUTEROL [Concomitant]
     Route: 055
  3. IPRATROPIUM BROMIDE [Concomitant]
     Route: 055
  4. ASPIRIN [Concomitant]
  5. CAPTOPRIL [Concomitant]
     Dosage: THERAPY-SEVERAL MONTHS
     Dates: end: 20040906
  6. PLAVIX [Concomitant]
  7. PEPCID [Concomitant]
     Dosage: 20 MG/2 ML
     Route: 042
  8. LASIX [Concomitant]
     Dosage: PREVIOUSLY 10 MG/ML TWICE DAILY.
  9. HUMALOG [Concomitant]
     Dosage: SSI-SLIDING SCALE INSULIN EVERY 4 HOURS. INSULIN GTT PER PROTOCOL, D50W IVP 2X.
  10. ISORDIL [Concomitant]
  11. POTASSIUM CHLORIDE [Concomitant]
  12. PREVACID [Concomitant]
  13. LANTUS [Concomitant]
     Dosage: DOSAGE FORM-UNITS
     Route: 058
  14. MORPHINE SULFATE [Concomitant]
  15. PROPOFOL [Concomitant]
     Route: 042
  16. ALBUMIN (HUMAN) [Concomitant]
     Dosage: PIGGYBACK (X1)
     Route: 042

REACTIONS (1)
  - ANGIONEUROTIC OEDEMA [None]
